FAERS Safety Report 11232635 (Version 3)
Quarter: 2015Q3

REPORT INFORMATION
  Report Type: Spontaneous
  Country: US (occurrence: US)
  Receive Date: 20150701
  Receipt Date: 20150716
  Transmission Date: 20151125
  Serious: Yes (Other)
  Sender: FDA-Public Use
  Company Number: 2015SP002192

PATIENT
  Age: 39 Year
  Sex: Male
  Weight: 101 kg

DRUGS (5)
  1. LATUDA [Suspect]
     Active Substance: LURASIDONE HYDROCHLORIDE
     Indication: BIPOLAR DISORDER
     Route: 048
     Dates: start: 20150621, end: 20150622
  2. CELEXA [Concomitant]
     Active Substance: CITALOPRAM HYDROBROMIDE
  3. LAMICTAL [Concomitant]
     Active Substance: LAMOTRIGINE
  4. LATUDA [Suspect]
     Active Substance: LURASIDONE HYDROCHLORIDE
     Indication: BIPOLAR DISORDER
     Route: 048
     Dates: start: 20150618, end: 20150620
  5. SEROQUEL [Concomitant]
     Active Substance: QUETIAPINE FUMARATE
     Indication: BIPOLAR DISORDER

REACTIONS (8)
  - Dysphagia [Recovered/Resolved]
  - Activation syndrome [Recovered/Resolved]
  - Cardiac flutter [Recovered/Resolved]
  - Nervousness [Recovered/Resolved]
  - Restlessness [Recovered/Resolved]
  - Expired product administered [Unknown]
  - Discomfort [Recovered/Resolved]
  - Abnormal dreams [Recovered/Resolved]

NARRATIVE: CASE EVENT DATE: 20150618
